FAERS Safety Report 9077287 (Version 1)
Quarter: 2013Q1

REPORT INFORMATION
  Report Type: Report from Study
  Country: US (occurrence: US)
  Receive Date: 20130129
  Receipt Date: 20130129
  Transmission Date: 20140127
  Serious: No
  Sender: FDA-Public Use
  Company Number: US-ABBOTT-12P-163-0946501-00

PATIENT
  Age: 64 Year
  Sex: Female

DRUGS (7)
  1. HUMIRA 40 MG/0.8 ML PEN [Suspect]
     Indication: RHEUMATOID ARTHRITIS
     Dosage: FIRST DOSE ONLY
     Dates: start: 20120601
  2. UNKNOWN MEDICATION [Concomitant]
     Indication: DEPRESSION
  3. UNKNOWN MEDICATION [Concomitant]
     Indication: ARTHRITIS
  4. UNKNOWN MEDICATION [Concomitant]
     Indication: PRURITUS
  5. UNKNOWN MEDICATION [Concomitant]
     Indication: INSOMNIA
  6. UNKNOWN MEDICATION [Concomitant]
     Indication: PAIN
  7. UNKNOWN MEDICATION [Concomitant]
     Indication: PAIN

REACTIONS (1)
  - Drug ineffective [Not Recovered/Not Resolved]
